FAERS Safety Report 19318612 (Version 1)
Quarter: 2021Q2

REPORT INFORMATION
  Report Type: Spontaneous
  Country: US (occurrence: US)
  Receive Date: 20210527
  Receipt Date: 20210527
  Transmission Date: 20210717
  Serious: Yes (Other)
  Sender: FDA-Public Use
  Company Number: None

PATIENT
  Sex: Female

DRUGS (1)
  1. MEDROXYPROGESTERONE [Suspect]
     Active Substance: MEDROXYPROGESTERONE
     Indication: CONTRACEPTION
     Dosage: OTHER FREQUENCY:EVERY 12 WEEKS;?
     Route: 030

REACTIONS (1)
  - Pregnancy with injectable contraceptive [None]

NARRATIVE: CASE EVENT DATE: 20210302
